FAERS Safety Report 21711912 (Version 1)
Quarter: 2022Q4

REPORT INFORMATION
  Report Type: Spontaneous
  Country: BE (occurrence: BE)
  Receive Date: 20221212
  Receipt Date: 20221212
  Transmission Date: 20230112
  Serious: Yes (Disabling)
  Sender: FDA-Public Use
  Company Number: None

PATIENT
  Age: 24 Year
  Sex: Male
  Weight: 95 kg

DRUGS (1)
  1. REMERGON [Suspect]
     Active Substance: MIRTAZAPINE
     Indication: Anxiety
     Dosage: 1X A DAY
     Route: 048
     Dates: start: 20221001

REACTIONS (6)
  - Headache [Recovering/Resolving]
  - Tinnitus [Recovering/Resolving]
  - Dry mouth [Recovering/Resolving]
  - Lack of satiety [Recovering/Resolving]
  - Abdominal pain [Recovering/Resolving]
  - Dizziness [Recovering/Resolving]

NARRATIVE: CASE EVENT DATE: 20221001
